FAERS Safety Report 18168460 (Version 4)
Quarter: 2021Q2

REPORT INFORMATION
  Report Type: Spontaneous
  Country: US (occurrence: US)
  Receive Date: 20200818
  Receipt Date: 20210428
  Transmission Date: 20210717
  Serious: No
  Sender: FDA-Public Use
  Company Number: US-PFIZER INC-2019301620

PATIENT
  Age: 53 Year
  Sex: Female
  Weight: 49.22 kg

DRUGS (2)
  1. PHENYTOIN SODIUM. [Suspect]
     Active Substance: PHENYTOIN SODIUM
     Indication: SEIZURE
     Dosage: 300 MG, DAILY (2 CAPSULES BY MOUTH IN THE MORNING AND ONE CAPSULE BY MOUTH AT BEDTIME)
     Route: 048
  2. PHENYTOIN SODIUM. [Suspect]
     Active Substance: PHENYTOIN SODIUM
     Indication: JOINT DISLOCATION

REACTIONS (1)
  - Drug ineffective [Unknown]
